FAERS Safety Report 7826984-7 (Version None)
Quarter: 2011Q4

REPORT INFORMATION
  Report Type: 
  Country: None (occurrence: None)
  Receive Date: 20111019
  Receipt Date: 20111019
  Transmission Date: 20120403
  Serious: Yes (Other)
  Sender: FDA-Public Use
  Company Number: None

PATIENT
  Sex: Female
  Weight: 81.6475 kg

DRUGS (1)
  1. BONIVA [Suspect]
     Indication: OSTEOPENIA
     Dosage: 150MG 1 A MONTH BY MOUTH
     Route: 048
     Dates: start: 20040101, end: 20110809

REACTIONS (2)
  - GROIN PAIN [None]
  - PELVIC FRACTURE [None]
